FAERS Safety Report 16552637 (Version 1)
Quarter: 2019Q3

REPORT INFORMATION
  Report Type: Spontaneous
  Country: DE (occurrence: DE)
  Receive Date: 20190710
  Receipt Date: 20190710
  Transmission Date: 20191004
  Serious: Yes (Life-Threatening, Hospitalization, Other)
  Sender: FDA-Public Use
  Company Number: PHHY2019DE158559

PATIENT
  Age: 97 Year
  Sex: Female
  Weight: 50 kg

DRUGS (4)
  1. IRBESARTAN. [Concomitant]
     Active Substance: IRBESARTAN
     Indication: PRODUCT USED FOR UNKNOWN INDICATION
     Dosage: 150 MG, QD (1-0-0-0)
     Route: 048
  2. LEVOTHYROXINUM NATRICUM [Concomitant]
     Indication: PRODUCT USED FOR UNKNOWN INDICATION
     Dosage: 50 G, QD (1-0-0-0)
     Route: 048
  3. ACETYLSALICYLIC ACID [Concomitant]
     Active Substance: ASPIRIN
     Indication: PRODUCT USED FOR UNKNOWN INDICATION
     Dosage: 100 MG, QD (1-0-0-0)
     Route: 048
  4. BISOPROLOL [Suspect]
     Active Substance: BISOPROLOL
     Indication: PRODUCT USED FOR UNKNOWN INDICATION
     Dosage: 2.5 MG, QD (1-0-0-0)
     Route: 048

REACTIONS (9)
  - Electrocardiogram abnormal [Unknown]
  - Vomiting [Unknown]
  - Asthenia [Unknown]
  - Nausea [Unknown]
  - Syncope [Unknown]
  - Bradycardia [Unknown]
  - Product prescribing error [Unknown]
  - Fatigue [Unknown]
  - Hypertension [Unknown]
